FAERS Safety Report 16417908 (Version 1)
Quarter: 2019Q2

REPORT INFORMATION
  Report Type: Other
  Country: NL (occurrence: PT)
  Receive Date: 20190611
  Receipt Date: 20190611
  Transmission Date: 20190711
  Serious: Yes (Other)
  Sender: FDA-Public Use
  Company Number: NL-KOWA-19EU001329

PATIENT
  Age: 59 Year
  Sex: Male

DRUGS (2)
  1. PITAVASTATIN. [Suspect]
     Active Substance: PITAVASTATIN CALCIUM
     Indication: PRODUCT USED FOR UNKNOWN INDICATION
     Dates: start: 20181102
  2. FEBUXOSTAT. [Suspect]
     Active Substance: FEBUXOSTAT
     Indication: HYPERURICAEMIA
     Dates: start: 20181102, end: 20181105

REACTIONS (2)
  - Nausea [Recovered/Resolved]
  - Anaemia [Recovered/Resolved]

NARRATIVE: CASE EVENT DATE: 20181102
